FAERS Safety Report 14586684 (Version 1)
Quarter: 2018Q1

REPORT INFORMATION
  Report Type: Other
  Country: DE (occurrence: DE)
  Receive Date: 20180301
  Receipt Date: 20180301
  Transmission Date: 20180509
  Serious: Yes (Life-Threatening, Hospitalization, Other)
  Sender: FDA-Public Use
  Company Number: DE-GLENMARK PHARMACEUTICALS-2018GMK032603

PATIENT

DRUGS (4)
  1. GABAPENTIN. [Suspect]
     Active Substance: GABAPENTIN
     Indication: ORTHOSTATIC TREMOR
     Dosage: 1800MG-2400MG
     Route: 048
     Dates: start: 20110101, end: 20170411
  2. GABAPENTIN GLENMARK 600 MG FILMTABLETTEN [Suspect]
     Active Substance: GABAPENTIN
     Dosage: 2400 MG, QD
     Route: 048
  3. APIXABAN [Concomitant]
     Active Substance: APIXABAN
     Indication: ATRIAL FIBRILLATION
     Dosage: UNK
     Route: 065
  4. GABAPENTIN GLENMARK 600 MG FILMTABLETTEN [Suspect]
     Active Substance: GABAPENTIN
     Indication: ORTHOSTATIC TREMOR
     Dosage: 1800 MG, QD
     Route: 048

REACTIONS (2)
  - Pleural effusion [Recovering/Resolving]
  - Organising pneumonia [Recovering/Resolving]

NARRATIVE: CASE EVENT DATE: 20170110
